FAERS Safety Report 23410040 (Version 1)
Quarter: 2024Q1

REPORT INFORMATION
  Report Type: Spontaneous
  Country: NL (occurrence: NL)
  Receive Date: 20240117
  Receipt Date: 20240117
  Transmission Date: 20240410
  Serious: Yes (Other)
  Sender: FDA-Public Use
  Company Number: NL-AMGEN-NLDSP2024007891

PATIENT

DRUGS (1)
  1. PROLIA [Suspect]
     Active Substance: DENOSUMAB
     Indication: Product used for unknown indication
     Dosage: UNK
     Route: 065

REACTIONS (7)
  - Fibrous dysplasia of bone [Unknown]
  - Albright^s disease [Unknown]
  - Mazabraud^s syndrome [Unknown]
  - Fracture [Unknown]
  - Limb deformity [Unknown]
  - Scoliosis [Unknown]
  - Off label use [Unknown]
